FAERS Safety Report 20890929 (Version 5)
Quarter: 2022Q3

REPORT INFORMATION
  Report Type: Report from Study
  Country: US (occurrence: US)
  Receive Date: 20220530
  Receipt Date: 20220922
  Transmission Date: 20221026
  Serious: No
  Sender: FDA-Public Use
  Company Number: US-NOVARTISTESTPH-NVSC2022US124062

PATIENT
  Age: 84 Year
  Sex: Male

DRUGS (1)
  1. LEQVIO [Suspect]
     Active Substance: INCLISIRAN SODIUM
     Indication: Product used for unknown indication
     Dosage: UNK
     Route: 058
     Dates: start: 20220407

REACTIONS (3)
  - COVID-19 [Unknown]
  - Confusional state [Unknown]
  - Injection site nodule [Unknown]

NARRATIVE: CASE EVENT DATE: 20220407
